FAERS Safety Report 10415252 (Version 1)
Quarter: 2014Q3

REPORT INFORMATION
  Report Type: Spontaneous
  Country: BR (occurrence: BR)
  Receive Date: 20140828
  Receipt Date: 20140828
  Transmission Date: 20150326
  Serious: Yes (Other)
  Sender: FDA-Public Use
  Company Number: PHHY2014BR107121

PATIENT
  Age: 45 Year
  Sex: Female

DRUGS (2)
  1. CICLOSPORIN [Suspect]
     Active Substance: CYCLOSPORINE
     Indication: POLYMYOSITIS
     Dosage: 2 MG/KG, PER DAY
  2. AZATHIOPRINE. [Suspect]
     Active Substance: AZATHIOPRINE
     Indication: POLYMYOSITIS
     Dosage: 3 MG/KG, PER DAY

REACTIONS (2)
  - Condition aggravated [Unknown]
  - Polymyositis [Unknown]
